FAERS Safety Report 16206067 (Version 1)
Quarter: 2019Q2

REPORT INFORMATION
  Report Type: Spontaneous
  Country: GB (occurrence: GB)
  Receive Date: 20190417
  Receipt Date: 20190417
  Transmission Date: 20190711
  Serious: Yes (Other)
  Sender: FDA-Public Use
  Company Number: GB-DRREDDYS-GER/UKI/19/0109450

PATIENT
  Age: 57 Year
  Sex: Male
  Weight: 81 kg

DRUGS (4)
  1. UNIROID [Concomitant]
     Indication: ILL-DEFINED DISORDER
     Dosage: USE 3 TIMES/DAY
     Dates: start: 20190221, end: 20190321
  2. CIPROFLOXACIN. [Suspect]
     Active Substance: CIPROFLOXACIN
     Indication: PRODUCT USED FOR UNKNOWN INDICATION
     Dosage: TAKE ONE TWICE DAILY
     Dates: start: 20190315
  3. DOXYCYCLINE. [Concomitant]
     Active Substance: DOXYCYCLINE
     Indication: ILL-DEFINED DISORDER
     Dosage: TWICE DAILY
     Dates: start: 20190325
  4. DILTIAZEM. [Concomitant]
     Active Substance: DILTIAZEM
     Indication: ILL-DEFINED DISORDER
     Dosage: USE AS DIRECTED
     Dates: start: 20190221, end: 20190222

REACTIONS (1)
  - Angina bullosa haemorrhagica [Recovered/Resolved]

NARRATIVE: CASE EVENT DATE: 20190325
